FAERS Safety Report 13014976 (Version 1)
Quarter: 2016Q4

REPORT INFORMATION
  Report Type: Spontaneous
  Country: GB (occurrence: GB)
  Receive Date: 20161210
  Receipt Date: 20161210
  Transmission Date: 20170207
  Serious: Yes (Death, Hospitalization, Other)
  Sender: FDA-Public Use
  Company Number: GB-BAXTER-2016BAX059309

PATIENT
  Sex: Male

DRUGS (1)
  1. EXTRANEAL [Suspect]
     Active Substance: CALCIUM CHLORIDE\ICODEXTRIN\MAGNESIUM CHLORIDE\SODIUM CHLORIDE\SODIUM LACTATE
     Indication: PERITONEAL DIALYSIS
     Route: 033
     Dates: start: 20151103, end: 20161116

REACTIONS (6)
  - Peritoneal cloudy effluent [Unknown]
  - Syncope [Unknown]
  - Gastrointestinal fistula [Unknown]
  - Abdominal sepsis [Fatal]
  - Myocardial ischaemia [Fatal]
  - Faecal vomiting [Unknown]

NARRATIVE: CASE EVENT DATE: 201611
